FAERS Safety Report 6302102-1 (Version None)
Quarter: 2009Q3

REPORT INFORMATION
  Report Type: 
  Country: None (occurrence: None)
  Receive Date: 20090807
  Receipt Date: 20090730
  Transmission Date: 20100115
  Serious: Yes (Hospitalization)
  Sender: FDA-Public Use
  Company Number: FR-BAXTER-2009BH012303

PATIENT
  Age: 59 Year
  Sex: Female

DRUGS (5)
  1. ENDOXAN BAXTER [Suspect]
     Indication: MULTIPLE MYELOMA
     Route: 042
     Dates: start: 20090220, end: 20090220
  2. VELCADE [Suspect]
     Indication: MULTIPLE MYELOMA
     Route: 042
     Dates: start: 20081127, end: 20081127
  3. VELCADE [Suspect]
     Route: 042
     Dates: start: 20081208, end: 20081208
  4. VELCADE [Suspect]
     Route: 042
     Dates: start: 20081230, end: 20081230
  5. VELCADE [Suspect]
     Route: 042
     Dates: start: 20090112, end: 20090112

REACTIONS (1)
  - VENOOCCLUSIVE DISEASE [None]
